FAERS Safety Report 6168777-5 (Version None)
Quarter: 2009Q2

REPORT INFORMATION
  Report Type: 
  Country: None (occurrence: None)
  Receive Date: 20090427
  Receipt Date: 20090416
  Transmission Date: 20091009
  Serious: Yes (Death, Hospitalization, Other)
  Sender: FDA-Public Use
  Company Number: US-JNJFOC-20090404278

PATIENT
  Age: 77 Year
  Sex: Female

DRUGS (1)
  1. REMICADE [Suspect]
     Indication: PSORIASIS
     Dosage: 2 INFUSIONS
     Route: 042

REACTIONS (3)
  - DEATH [None]
  - DERMATITIS EXFOLIATIVE [None]
  - HOSPITALISATION [None]
